FAERS Safety Report 6647723-1 (Version None)
Quarter: 2010Q1

REPORT INFORMATION
  Report Type: 
  Country: None (occurrence: None)
  Receive Date: 20100323
  Receipt Date: 20100323
  Transmission Date: 20100710
  Serious: Yes (Other)
  Sender: FDA-Public Use
  Company Number: None

PATIENT
  Age: 16 Year
  Sex: Female
  Weight: 58.0604 kg

DRUGS (1)
  1. VALPROIC ACID [Suspect]
     Indication: MIGRAINE
     Dosage: 1-2 CAPSULES 2 TIMES A DAY BY MOUTH
     Route: 048

REACTIONS (3)
  - DRUG PRESCRIBING ERROR [None]
  - INTERCEPTED MEDICATION ERROR [None]
  - MEDICATION ERROR [None]
